FAERS Safety Report 10009545 (Version 1)
Quarter: 2014Q1

REPORT INFORMATION
  Report Type: Spontaneous
  Country: US (occurrence: US)
  Receive Date: 20140312
  Receipt Date: 20140312
  Transmission Date: 20141002
  Serious: No
  Sender: FDA-Public Use
  Company Number: US-INCYTE CORPORATION-2012IN001657

PATIENT
  Age: 62 Year
  Sex: Female

DRUGS (3)
  1. JAKAFI [Suspect]
     Indication: MYELOFIBROSIS
     Dosage: 15 MG, BID
     Dates: start: 2012
  2. LEVOXYL [Concomitant]
  3. VITAMIN D3 [Concomitant]

REACTIONS (3)
  - Insomnia [Unknown]
  - Anxiety [Unknown]
  - Feeling hot [Unknown]
